FAERS Safety Report 25382735 (Version 1)
Quarter: 2025Q2

REPORT INFORMATION
  Report Type: Spontaneous
  Country: CH (occurrence: CH)
  Receive Date: 20250602
  Receipt Date: 20250602
  Transmission Date: 20250717
  Serious: Yes (Other)
  Sender: TEVA
  Company Number: CH-TEVA-VS-3336078

PATIENT
  Age: 64 Year

DRUGS (3)
  1. AMOXICILLIN [Suspect]
     Active Substance: AMOXICILLIN
     Indication: Endocarditis enterococcal
     Route: 065
  2. GENTAMICIN [Suspect]
     Active Substance: GENTAMICIN
     Indication: Endocarditis enterococcal
     Route: 065
  3. CEFTRIAXONE [Concomitant]
     Active Substance: CEFTRIAXONE
     Indication: Endocarditis enterococcal
     Route: 065

REACTIONS (4)
  - Acute kidney injury [Recovered/Resolved]
  - Hydronephrosis [Recovered/Resolved]
  - Calculus urinary [Recovered/Resolved]
  - Haematuria [Recovered/Resolved]
